FAERS Safety Report 7918222-1 (Version None)
Quarter: 2011Q4

REPORT INFORMATION
  Report Type: 
  Country: None (occurrence: None)
  Receive Date: 20111116
  Receipt Date: 20111108
  Transmission Date: 20120403
  Serious: Yes (Death, Hospitalization)
  Sender: FDA-Public Use
  Company Number: US-GLAXOSMITHKLINE-A0905645A

PATIENT
  Age: 75 Year
  Sex: Female

DRUGS (10)
  1. RISPERDAL [Concomitant]
  2. AMARYL [Concomitant]
  3. LASIX [Concomitant]
  4. AVANDIA [Suspect]
     Indication: DIABETES MELLITUS
     Dosage: 4MG TWICE PER DAY
     Dates: start: 20000301, end: 20030101
  5. TOPROL-XL [Concomitant]
  6. SINEMET [Concomitant]
  7. LIPITOR [Concomitant]
  8. PROZAC [Concomitant]
  9. ASPIRIN [Concomitant]
  10. ZANTAC [Concomitant]

REACTIONS (5)
  - ATRIAL FIBRILLATION [None]
  - CARDIAC FAILURE CONGESTIVE [None]
  - MYOCARDIAL INFARCTION [None]
  - CORONARY ARTERY DISEASE [None]
  - CARDIO-RESPIRATORY ARREST [None]
